FAERS Safety Report 5863662-8 (Version None)
Quarter: 2008Q3

REPORT INFORMATION
  Report Type: 
  Country: None (occurrence: None)
  Receive Date: 20080828
  Receipt Date: 20080813
  Transmission Date: 20090109
  Serious: Yes (Hospitalization, Other)
  Sender: FDA-Public Use
  Company Number: FR-PFIZER INC-2008067793

PATIENT
  Sex: Male
  Weight: 81 kg

DRUGS (8)
  1. METHYLPREDNISOLONE 16MG TAB [Suspect]
  2. PANITUMUMAB [Suspect]
     Indication: COLORECTAL CANCER
     Dosage: TEXT:6 MG/KG
     Dates: start: 20070820, end: 20070820
  3. ZOPHREN [Suspect]
  4. FENTANYL-25 [Concomitant]
  5. METOCLOPRAMIDE [Concomitant]
  6. ZOPICLONE [Concomitant]
  7. PARAFFIN, LIQUID [Concomitant]
  8. ALL OTHER THERAPEUTIC PRODUCTS [Concomitant]

REACTIONS (13)
  - ASTHENIA [None]
  - BLOOD PRESSURE DECREASED [None]
  - DIARRHOEA [None]
  - FEELING HOT [None]
  - HYPERHIDROSIS [None]
  - HYPERSENSITIVITY [None]
  - HYPERTHERMIA [None]
  - LOSS OF CONSCIOUSNESS [None]
  - MALAISE [None]
  - NO REACTION ON PREVIOUS EXPOSURE TO DRUG [None]
  - OXYGEN SATURATION DECREASED [None]
  - PARAESTHESIA [None]
  - PRURITUS [None]
